FAERS Safety Report 12281884 (Version 3)
Quarter: 2016Q2

REPORT INFORMATION
  Report Type: Spontaneous
  Country: IT (occurrence: IT)
  Receive Date: 20160419
  Receipt Date: 20160622
  Transmission Date: 20160815
  Serious: Yes (Hospitalization)
  Sender: FDA-Public Use
  Company Number: IT-PFIZER INC-2016211936

PATIENT
  Age: 76 Year
  Sex: Male

DRUGS (9)
  1. TORVAST [Suspect]
     Active Substance: ATORVASTATIN
     Dosage: 10 MG, DAILY
     Route: 048
     Dates: start: 20140930
  2. MOXIFLOXACIN HCL [Suspect]
     Active Substance: MOXIFLOXACIN
     Indication: PYREXIA
     Dosage: 400 MG, DAILY
     Route: 048
     Dates: start: 20160322, end: 20160330
  3. ALLOPURINOL. [Concomitant]
     Active Substance: ALLOPURINOL
     Route: 048
  4. NORVASC [Concomitant]
     Active Substance: AMLODIPINE BESYLATE
     Route: 048
  5. CEFTRIAXONE SODIUM. [Suspect]
     Active Substance: CEFTRIAXONE SODIUM
     Indication: PYREXIA
     Dosage: 1 G, DAILY
     Route: 030
     Dates: start: 20160322, end: 20160330
  6. CARDICOR [Concomitant]
     Active Substance: BISOPROLOL
     Route: 048
  7. MEDROL [Concomitant]
     Active Substance: METHYLPREDNISOLONE
     Indication: MYALGIA
     Dosage: 8 MG, UNK
     Route: 048
     Dates: start: 20160329
  8. TICLOPIDINE [Concomitant]
     Active Substance: TICLOPIDINE
     Route: 048
  9. BLOPRESS [Concomitant]
     Active Substance: CANDESARTAN CILEXETIL
     Route: 048

REACTIONS (3)
  - Pain in extremity [Recovered/Resolved]
  - Mechanical urticaria [Recovered/Resolved]
  - Pruritus generalised [Recovered/Resolved]

NARRATIVE: CASE EVENT DATE: 20160402
